FAERS Safety Report 19158012 (Version 1)
Quarter: 2021Q2

REPORT INFORMATION
  Report Type: Spontaneous
  Country: US (occurrence: US)
  Receive Date: 20210419
  Receipt Date: 20210419
  Transmission Date: 20210717
  Serious: No
  Sender: FDA-Public Use
  Company Number: None

PATIENT
  Age: 59 Year
  Sex: Female

DRUGS (22)
  1. AMLODIPNE [Concomitant]
  2. DULOXETINE. [Concomitant]
     Active Substance: DULOXETINE
  3. MULTIPLE VITAMIN [Concomitant]
     Active Substance: VITAMINS
  4. MYRBETRIQ [Concomitant]
     Active Substance: MIRABEGRON
  5. NEXIUM [Concomitant]
     Active Substance: ESOMEPRAZOLE MAGNESIUM
  6. PLAVIX [Concomitant]
     Active Substance: CLOPIDOGREL BISULFATE
  7. COENZYME Q10 [Concomitant]
     Active Substance: DIETARY SUPPLEMENT\UBIDECARENONE
  8. NAPROXEN. [Concomitant]
     Active Substance: NAPROXEN
  9. PREDNISONE. [Concomitant]
     Active Substance: PREDNISONE
  10. VITAMIN D3 [Concomitant]
     Active Substance: CHOLECALCIFEROL
  11. ZOLPIDEM ZYRTEC ALLGY [Concomitant]
  12. ST, JOHN WORT [Concomitant]
  13. GABAPENTIN. [Concomitant]
     Active Substance: GABAPENTIN
  14. MELOXICAM. [Concomitant]
     Active Substance: MELOXICAM
  15. TUZANIDINE [Concomitant]
  16. MAYZENT [Suspect]
     Active Substance: SIPONIMOD
     Indication: MULTIPLE SCLEROSIS
     Route: 048
     Dates: start: 20201231
  17. BUPROPN [Concomitant]
  18. DONEPEZIL. [Concomitant]
     Active Substance: DONEPEZIL
  19. LISINOPRIL. [Concomitant]
     Active Substance: LISINOPRIL
  20. METHOCARBAM [Concomitant]
     Active Substance: METHOCARBAMOL
  21. CHLORTHALID [Concomitant]
     Active Substance: CHLORTHALIDONE
  22. VITAMIN B12 [Concomitant]
     Active Substance: CYANOCOBALAMIN

REACTIONS (1)
  - Seizure [None]

NARRATIVE: CASE EVENT DATE: 20210418
